FAERS Safety Report 24726855 (Version 2)
Quarter: 2024Q4

REPORT INFORMATION
  Report Type: Spontaneous
  Country: IT (occurrence: IT)
  Receive Date: 20241212
  Receipt Date: 20241219
  Transmission Date: 20250114
  Serious: Yes (Disabling)
  Sender: PFIZER
  Company Number: IT-PFIZER INC-PV202400128590

PATIENT
  Age: 51 Year
  Sex: Female
  Weight: 53 kg

DRUGS (1)
  1. BAZEDOXIFENE ACETATE\ESTROGENS, CONJUGATED [Suspect]
     Active Substance: BAZEDOXIFENE ACETATE\ESTROGENS, CONJUGATED
     Indication: Menopausal disorder
     Dosage: 0.45 MG/20 MG, 1X/DAY
     Route: 048
     Dates: start: 202401

REACTIONS (6)
  - Photopsia [Not Recovered/Not Resolved]
  - Dry eye [Not Recovered/Not Resolved]
  - Intraocular pressure increased [Not Recovered/Not Resolved]
  - Migraine [Unknown]
  - Visual impairment [Not Recovered/Not Resolved]
  - Vaginal haemorrhage [Unknown]

NARRATIVE: CASE EVENT DATE: 20240101
